FAERS Safety Report 4292681-0 (Version None)
Quarter: 2004Q1

REPORT INFORMATION
  Report Type: 
  Country: None (occurrence: None)
  Receive Date: 20040126
  Receipt Date: 20031008
  Transmission Date: 20041129
  Serious: No
  Sender: FDA-Public Use
  Company Number: USA031049355

PATIENT
  Age: 75 Year
  Sex: Female
  Weight: 72 kg

DRUGS (5)
  1. FORTEO [Suspect]
     Indication: LOWER LIMB FRACTURE
     Dates: start: 20030901
  2. FORTEO [Suspect]
     Indication: OSTEOPOROSIS
     Dates: start: 20030901
  3. EVISTA [Concomitant]
  4. FOSAMAX [Concomitant]
  5. MULTIVITAMIN [Concomitant]

REACTIONS (2)
  - DIZZINESS [None]
  - NERVOUSNESS [None]
